FAERS Safety Report 15660638 (Version 2)
Quarter: 2018Q4

REPORT INFORMATION
  Report Type: Spontaneous
  Country: US (occurrence: US)
  Receive Date: 20181127
  Receipt Date: 20181210
  Transmission Date: 20190205
  Serious: No
  Sender: FDA-Public Use
  Company Number: US-009507513-1811USA009295

PATIENT
  Age: 43 Year
  Sex: Male

DRUGS (1)
  1. JANUVIA [Suspect]
     Active Substance: SITAGLIPTIN PHOSPHATE
     Indication: DIABETES MELLITUS
     Dosage: 100 MG/ ONCE A DAY
     Route: 048
     Dates: start: 201511

REACTIONS (5)
  - Blood glucose increased [Recovered/Resolved]
  - Pruritus [Recovered/Resolved]
  - Dysuria [Recovered/Resolved]
  - Confusional state [Not Recovered/Not Resolved]
  - Product dose omission [Unknown]
